FAERS Safety Report 5797659-3 (Version None)
Quarter: 2008Q2

REPORT INFORMATION
  Report Type: 
  Country: None (occurrence: None)
  Receive Date: 20080623
  Receipt Date: 20080623
  Transmission Date: 20081010
  Serious: Yes (Hospitalization, Other)
  Sender: FDA-Public Use
  Company Number: 163-21880-08040597

PATIENT
  Age: 72 Year
  Sex: Male

DRUGS (5)
  1. REVLIMID [Suspect]
     Indication: MULTIPLE MYELOMA
     Dosage: 15 MG, QD X21 DAYS, ORAL; 25 MG, 1 IN 1 D, ORAL
     Route: 048
     Dates: start: 20071113
  2. REVLIMID [Suspect]
     Indication: MULTIPLE MYELOMA
     Dosage: 15 MG, QD X21 DAYS, ORAL; 25 MG, 1 IN 1 D, ORAL
     Route: 048
     Dates: start: 20080530
  3. DEXAMETHASONE TAB [Concomitant]
  4. LASIX [Concomitant]
  5. POTASSIUM (POTASSIUM) [Concomitant]

REACTIONS (3)
  - ANEURYSM [None]
  - AORTIC VALVE DISEASE [None]
  - FATIGUE [None]
